FAERS Safety Report 5933806-8 (Version None)
Quarter: 2008Q4

REPORT INFORMATION
  Report Type: 
  Country: None (occurrence: None)
  Receive Date: 20081029
  Receipt Date: 20081020
  Transmission Date: 20090506
  Serious: Yes (Hospitalization)
  Sender: FDA-Public Use
  Company Number: AU-PURDUE-USA_2008_0035520

PATIENT
  Age: 52 Year
  Sex: Female

DRUGS (10)
  1. OXYCONTIN [Suspect]
     Indication: DRUG USE FOR UNKNOWN INDICATION
     Dosage: 40 MG, DAILY
     Route: 048
     Dates: start: 20080602, end: 20080604
  2. OXYIR [Suspect]
     Indication: DRUG USE FOR UNKNOWN INDICATION
     Dosage: 10 MG, DAILY
     Route: 048
     Dates: start: 20080602, end: 20080605
  3. KETAMINE                           /00171202/ [Suspect]
     Indication: DRUG USE FOR UNKNOWN INDICATION
     Route: 048
  4. CEFAZOLIN [Concomitant]
     Dates: start: 20080530, end: 20080530
  5. COLOXYL WITH SENNA [Concomitant]
     Dates: start: 20080601
  6. DICLOFENAC POTASSIUM [Concomitant]
     Dosage: UNK, UNK
     Dates: start: 20080601, end: 20080604
  7. IRBESARTAN [Concomitant]
  8. MORPHINE SULFATE [Concomitant]
  9. ACETAMINOPHEN [Concomitant]
  10. TRAMADOL HCL [Concomitant]

REACTIONS (4)
  - CONFUSIONAL STATE [None]
  - DELIRIUM [None]
  - HALLUCINATION [None]
  - PARANOIA [None]
